FAERS Safety Report 4269400-7 (Version None)
Quarter: 2004Q1

REPORT INFORMATION
  Report Type: 
  Country: None (occurrence: None)
  Receive Date: 20040108
  Receipt Date: 20031231
  Transmission Date: 20041129
  Serious: Yes (Other)
  Sender: FDA-Public Use
  Company Number: 2004-UK-00001UK

PATIENT
  Age: 83 Year
  Sex: Male

DRUGS (5)
  1. MICARDIS [Suspect]
     Indication: HYPERTENSION
     Dosage: 80 MG, PO
     Route: 048
     Dates: start: 20011201
  2. ADALAT [Concomitant]
  3. ATENOLOL [Concomitant]
  4. WARFARIN SODIUM [Concomitant]
  5. DIGOXIN [Concomitant]

REACTIONS (1)
  - VENTRICULAR TACHYCARDIA [None]
